FAERS Safety Report 6870593-3 (Version None)
Quarter: 2010Q3

REPORT INFORMATION
  Report Type: 
  Country: None (occurrence: None)
  Receive Date: 20100723
  Receipt Date: 20100712
  Transmission Date: 20110219
  Serious: Yes (Other)
  Sender: FDA-Public Use
  Company Number: PHHY2010IT46095

PATIENT
  Age: 20 Year
  Sex: Female

DRUGS (1)
  1. DEFEROXAMINE MESYLATE [Suspect]
     Indication: IRON OVERLOAD
     Dosage: 50 MG/KG, DAY (OVER 8-12 HR) FOR 5 DAYS PER WEEK
     Route: 058

REACTIONS (3)
  - PYREXIA [None]
  - SKIN REACTION [None]
  - SPLENECTOMY [None]
